FAERS Safety Report 4973886-X (Version None)
Quarter: 2006Q2

REPORT INFORMATION
  Report Type: 
  Country: None (occurrence: None)
  Receive Date: 20060417
  Receipt Date: 20060406
  Transmission Date: 20061013
  Serious: Yes (Death)
  Sender: FDA-Public Use
  Company Number: US-JNJFOC-20060401571

PATIENT
  Sex: Female

DRUGS (19)
  1. REMICADE [Suspect]
     Indication: RHEUMATOID ARTHRITIS
     Route: 042
  2. ASACOL [Concomitant]
  3. DIGOXIN [Concomitant]
  4. FERROUS SULFATE TAB [Concomitant]
  5. IMURAN [Concomitant]
  6. MULTI-VITAMIN [Concomitant]
  7. MULTI-VITAMIN [Concomitant]
  8. MULTI-VITAMIN [Concomitant]
  9. MULTI-VITAMIN [Concomitant]
  10. MULTI-VITAMIN [Concomitant]
  11. MULTI-VITAMIN [Concomitant]
  12. MULTI-VITAMIN [Concomitant]
  13. MULTI-VITAMIN [Concomitant]
  14. PREDNISONE TAB [Concomitant]
  15. TOPROL-XL [Concomitant]
  16. TYLENOL (CAPLET) [Concomitant]
  17. PROTONIX [Concomitant]
  18. CALCIUM+D [Concomitant]
  19. CALCIUM+D [Concomitant]

REACTIONS (3)
  - AORTIC VALVE STENOSIS [None]
  - CARDIAC ARREST [None]
  - GASTROINTESTINAL HAEMORRHAGE [None]
